FAERS Safety Report 10576707 (Version 1)
Quarter: 2014Q4

REPORT INFORMATION
  Report Type: Spontaneous
  Country: US (occurrence: None)
  Receive Date: 20141110
  Receipt Date: 20141110
  Transmission Date: 20150529
  Serious: Yes (Hospitalization)
  Sender: FDA-Public Use
  Company Number: None

PATIENT
  Age: 35 Year
  Sex: Female
  Weight: 63.5 kg

DRUGS (3)
  1. LEVAQUIN [Suspect]
     Active Substance: LEVOFLOXACIN
     Indication: GASTROENTERITIS VIRAL
     Dosage: 1 PILL
     Dates: start: 20070501, end: 20070502
  2. LEVAQUIN [Suspect]
     Active Substance: LEVOFLOXACIN
     Indication: DIARRHOEA
     Dosage: 1 PILL
     Dates: start: 20070501, end: 20070502
  3. LEVAQUIN [Suspect]
     Active Substance: LEVOFLOXACIN
     Indication: MUSCLE SPASMS
     Dosage: 1 PILL
     Dates: start: 20070501, end: 20070502

REACTIONS (9)
  - Pyrexia [None]
  - Photosensitivity reaction [None]
  - Tremor [None]
  - Joint crepitation [None]
  - Joint swelling [None]
  - Rash [None]
  - Arthralgia [None]
  - Night sweats [None]
  - Alopecia [None]

NARRATIVE: CASE EVENT DATE: 20070501
